FAERS Safety Report 5299003-7 (Version None)
Quarter: 2007Q2

REPORT INFORMATION
  Report Type: 
  Country: None (occurrence: None)
  Receive Date: 20070412
  Receipt Date: 20070412
  Transmission Date: 20071010
  Serious: Yes (Other)
  Sender: FDA-Public Use
  Company Number: None

PATIENT
  Sex: Female
  Weight: 56.6996 kg

DRUGS (1)
  1. TRASYLOL [Suspect]
     Indication: HAEMORRHAGE CONTROL
     Dates: start: 20070221, end: 20070221

REACTIONS (6)
  - BACTERAEMIA [None]
  - PERICARDITIS [None]
  - POSTOPERATIVE RENAL FAILURE [None]
  - RENAL FAILURE ACUTE [None]
  - STAPHYLOCOCCAL INFECTION [None]
  - WOUND INFECTION [None]
